FAERS Safety Report 8838938 (Version 1)
Quarter: 2012Q4

REPORT INFORMATION
  Report Type: 
  Country: US (occurrence: US)
  Receive Date: 20121015
  Receipt Date: 20121015
  Transmission Date: 20130627
  Serious: No
  Sender: FDA-Public Use
  Company Number: US-B.I. PHARMACEUTICALS,INC./RIDGEFIELD-2012-BP-23965BP

PATIENT
  Sex: Male

DRUGS (4)
  1. ZANTAC 75 (RANITIDINE HYDROCHLORIDE) [Suspect]
     Indication: DYSPEPSIA
     Dosage: 75 mg
     Route: 048
     Dates: start: 20120928
  2. ZANTAC 75 (RANITIDINE HYDROCHLORIDE) [Suspect]
     Indication: DYSPEPSIA
  3. REVERSITROL [Concomitant]
     Indication: PROPHYLAXIS
     Dosage: 100 mg
     Route: 048
     Dates: start: 2007
  4. MULTIVITAMIN [Concomitant]
     Route: 048
     Dates: start: 1992

REACTIONS (3)
  - Headache [Recovered/Resolved]
  - Diarrhoea [Unknown]
  - Pollakiuria [Unknown]
